FAERS Safety Report 5100756-9 (Version None)
Quarter: 2006Q3

REPORT INFORMATION
  Report Type: 
  Country: None (occurrence: None)
  Receive Date: 20060906
  Receipt Date: 20060822
  Transmission Date: 20061208
  Serious: Yes (Hospitalization)
  Sender: FDA-Public Use
  Company Number: 2006RL000311

PATIENT
  Age: 50 Year
  Sex: Male
  Weight: 85 kg

DRUGS (3)
  1. PROPRANOLOL HYDROCHLORIDE [Suspect]
     Indication: DRUG USE FOR UNKNOWN INDICATION
     Dosage: 1600 MG;X1;PO
     Route: 048
  2. HYDROCHLORIC ACID (HYDROCHLORIC ACID) [Suspect]
     Dosage: 150 ML;X1;PO
     Route: 048
  3. OXAZEPAM [Suspect]
     Dosage: PO
     Route: 048

REACTIONS (6)
  - BRADYCARDIA [None]
  - CARDIAC ARREST [None]
  - HYPOTENSION [None]
  - METABOLIC ACIDOSIS [None]
  - SHOCK [None]
  - SUICIDE ATTEMPT [None]
